FAERS Safety Report 7259757-7 (Version None)
Quarter: 2011Q1

REPORT INFORMATION
  Report Type: 
  Country: None (occurrence: None)
  Receive Date: 20110130
  Receipt Date: 20100901
  Transmission Date: 20110831
  Serious: No
  Sender: FDA-Public Use
  Company Number: US-ABBOTT-10P-163-0663002-00

PATIENT
  Age: 51 Year
  Sex: Female

DRUGS (6)
  1. HUMIRA [Suspect]
     Indication: ANKYLOSING SPONDYLITIS
     Dates: start: 20080601
  2. SYNTHROID [Concomitant]
     Indication: THYROID DISORDER
  3. PREMARIN [Concomitant]
     Indication: HORMONE REPLACEMENT THERAPY
  4. IRON SUPPLEMENT [Concomitant]
  5. CYTOMEL [Concomitant]
     Indication: THYROID DISORDER
  6. KAPIDEX [Concomitant]
     Indication: GASTROOESOPHAGEAL REFLUX DISEASE

REACTIONS (5)
  - INJECTION SITE PAPULE [None]
  - INJECTION SITE HAEMATOMA [None]
  - INJECTION SITE PAIN [None]
  - DEVICE MALFUNCTION [None]
  - INCORRECT DOSE ADMINISTERED [None]
